FAERS Safety Report 8832057 (Version 2)
Quarter: 2012Q4

REPORT INFORMATION
  Report Type: Report from Study
  Country: US (occurrence: US)
  Receive Date: 20121009
  Receipt Date: 20121015
  Transmission Date: 20130627
  Serious: Yes (Hospitalization, Other)
  Sender: FDA-Public Use
  Company Number: US-US-EMD SERONO, INC.-7164984

PATIENT
  Sex: Female

DRUGS (1)
  1. REBIF [Suspect]
     Indication: PRODUCT USED FOR UNKNOWN INDICATION
     Route: 058
     Dates: start: 20120620

REACTIONS (5)
  - Knee arthroplasty [Unknown]
  - Deep vein thrombosis [Unknown]
  - Vitamin D decreased [Unknown]
  - White blood cell count decreased [Unknown]
  - Injection site erythema [Recovering/Resolving]
